FAERS Safety Report 6093473-2 (Version None)
Quarter: 2009Q1

REPORT INFORMATION
  Report Type: 
  Country: None (occurrence: None)
  Receive Date: 20090226
  Receipt Date: 20090217
  Transmission Date: 20090719
  Serious: Yes (Hospitalization)
  Sender: FDA-Public Use
  Company Number: AT-AMGEN-UK322796

PATIENT
  Sex: Female

DRUGS (4)
  1. ROMIPLOSTIM [Suspect]
     Indication: IDIOPATHIC THROMBOCYTOPENIC PURPURA
     Route: 058
     Dates: start: 20080925, end: 20081127
  2. CIPROFLOXACIN [Concomitant]
     Route: 065
     Dates: start: 20081202
  3. SOLU DACORTIN H [Concomitant]
     Route: 042
  4. NEURONTIN [Concomitant]
     Route: 065

REACTIONS (1)
  - VESTIBULAR DISORDER [None]
